FAERS Safety Report 10036327 (Version 2)
Quarter: 2014Q1

REPORT INFORMATION
  Report Type: Spontaneous
  Country: US (occurrence: US)
  Receive Date: 20140325
  Receipt Date: 20140325
  Transmission Date: 20141002
  Serious: Yes (Other)
  Sender: FDA-Public Use
  Company Number: US-PFIZER INC-2013254550

PATIENT
  Age: 43 Year
  Sex: Male
  Weight: 70.3 kg

DRUGS (9)
  1. LYRICA [Suspect]
     Indication: FIBROMYALGIA
     Dosage: 150 MG, 2X/DAY
     Route: 048
     Dates: start: 2013
  2. TIZANIDINE [Suspect]
     Indication: MUSCLE RELAXANT THERAPY
     Dosage: UNK
     Dates: start: 20140202, end: 2014
  3. CYMBALTA [Concomitant]
     Dosage: UNK
  4. ADVAIR [Concomitant]
     Dosage: UNK
  5. VENTOLIN [Concomitant]
     Dosage: UNK
  6. CLARITIN-D [Concomitant]
     Dosage: UNK
  7. OMEPRAZOLE [Concomitant]
     Dosage: UNK
  8. HYDROCODONE [Concomitant]
     Dosage: UNK
  9. LORAZEPAM [Concomitant]
     Dosage: UNK

REACTIONS (5)
  - Road traffic accident [Unknown]
  - Clavicle fracture [Recovering/Resolving]
  - Contusion [Recovering/Resolving]
  - Skin lesion [Recovering/Resolving]
  - Liver disorder [Unknown]
